FAERS Safety Report 18088965 (Version 1)
Quarter: 2020Q3

REPORT INFORMATION
  Report Type: Spontaneous
  Country: US (occurrence: US)
  Receive Date: 20200730
  Receipt Date: 20200730
  Transmission Date: 20201103
  Serious: No
  Sender: FDA-Public Use
  Company Number: US-SA-2020SA195998

PATIENT

DRUGS (3)
  1. DUPIXENT [Suspect]
     Active Substance: DUPILUMAB
     Dosage: 300 MG, QOW
     Route: 058
     Dates: start: 20200409
  2. ZOLOFT [Concomitant]
     Active Substance: SERTRALINE HYDROCHLORIDE
  3. PREVACID [Concomitant]
     Active Substance: LANSOPRAZOLE

REACTIONS (13)
  - Ocular hyperaemia [Unknown]
  - Eye disorder [Unknown]
  - Nasal congestion [Unknown]
  - Paraesthesia [Unknown]
  - Rhinorrhoea [Unknown]
  - Rash [Unknown]
  - Eye swelling [Unknown]
  - Lacrimation increased [Unknown]
  - Lymphadenopathy [Unknown]
  - Cough [Unknown]
  - Sneezing [Unknown]
  - Eye pruritus [Unknown]
  - Deformity [Unknown]

NARRATIVE: CASE EVENT DATE: 20200722
